FAERS Safety Report 4864114-4 (Version None)
Quarter: 2005Q4

REPORT INFORMATION
  Report Type: 
  Country: None (occurrence: None)
  Receive Date: 20051222
  Receipt Date: 20050228
  Transmission Date: 20060501
  Serious: Yes (Hospitalization)
  Sender: FDA-Public Use
  Company Number: FR-GLAXOSMITHKLINE-B0373779A

PATIENT
  Age: 60 Year
  Sex: Male
  Weight: 77 kg

DRUGS (5)
  1. AVANDIA [Suspect]
     Dosage: 4MG PER DAY
     Route: 048
     Dates: start: 20030318, end: 20041018
  2. LIPANTHYL [Suspect]
     Dosage: 200MG PER DAY
     Route: 048
     Dates: start: 20001201
  3. COLCHICINE [Concomitant]
     Indication: FAMILIAL MEDITERRANEAN FEVER
     Dosage: 1TAB PER DAY
     Route: 048
  4. GLUCOPHAGE [Concomitant]
     Dosage: 850MG TWICE PER DAY
     Route: 048
     Dates: start: 19970101
  5. CO-APROVEL [Concomitant]
     Dosage: 300MG PER DAY
     Route: 048

REACTIONS (2)
  - ACUTE CORONARY SYNDROME [None]
  - HIGH DENSITY LIPOPROTEIN DECREASED [None]
